FAERS Safety Report 7633162-3 (Version None)
Quarter: 2011Q3

REPORT INFORMATION
  Report Type: 
  Country: None (occurrence: None)
  Receive Date: 20110725
  Receipt Date: 20110713
  Transmission Date: 20111222
  Serious: Yes (Other)
  Sender: FDA-Public Use
  Company Number: US-ROCHE-769919

PATIENT
  Sex: Female
  Weight: 65.8 kg

DRUGS (4)
  1. ACCUTANE [Suspect]
     Route: 048
     Dates: start: 19991209, end: 20000301
  2. ACCUTANE [Suspect]
     Dosage: IN DIVIDED DOSE
     Route: 048
     Dates: end: 20000522
  3. ACCUTANE [Suspect]
     Dosage: IN DIVIDED DOSE
     Route: 048
     Dates: start: 20000422
  4. ACCUTANE [Suspect]
     Dosage: IN DIVIDED DOSE
     Route: 048
     Dates: end: 20000422

REACTIONS (6)
  - PROCTITIS ULCERATIVE [None]
  - ACNE [None]
  - PROTEINURIA [None]
  - ANXIETY [None]
  - INFLAMMATORY BOWEL DISEASE [None]
  - BLOOD TRIGLYCERIDES INCREASED [None]
